FAERS Safety Report 8518886-8 (Version None)
Quarter: 2012Q3

REPORT INFORMATION
  Report Type: 
  Country: None (occurrence: None)
  Receive Date: 20120718
  Receipt Date: 20120710
  Transmission Date: 20120928
  Serious: Yes (Hospitalization, Other)
  Sender: FDA-Public Use
  Company Number: US-BRISTOL-MYERS SQUIBB COMPANY-16598955

PATIENT
  Age: 48 Year
  Sex: Male

DRUGS (3)
  1. LOVAZA [Concomitant]
  2. VITAMIN D [Concomitant]
  3. YERVOY [Suspect]
     Indication: METASTATIC MALIGNANT MELANOMA
     Dosage: NO OF DOSES 3 14DEC11 297MG 3JAN12 300MG
     Route: 042
     Dates: start: 20111117

REACTIONS (2)
  - NEOPLASM MALIGNANT [None]
  - SPINAL CORD COMPRESSION [None]
